FAERS Safety Report 6355784-2 (Version None)
Quarter: 2009Q3

REPORT INFORMATION
  Report Type: 
  Country: None (occurrence: None)
  Receive Date: 20090915
  Receipt Date: 20070525
  Transmission Date: 20100115
  Serious: Yes (Hospitalization, Disabling)
  Sender: FDA-Public Use
  Company Number: US-ASTRAZENECA-2006UW25762

PATIENT
  Sex: Female
  Weight: 80.7 kg

DRUGS (12)
  1. SEROQUEL [Suspect]
     Indication: POST-TRAUMATIC STRESS DISORDER
     Route: 048
     Dates: start: 20050421
  2. SEROQUEL [Suspect]
     Route: 048
     Dates: end: 20050101
  3. SEROQUEL [Suspect]
     Route: 048
     Dates: end: 20050101
  4. ULTRAM [Concomitant]
     Dates: start: 20060614
  5. FLEXERIL [Concomitant]
     Dates: start: 20060614
  6. NAPROSYN [Concomitant]
     Dates: start: 20060614
  7. PAXIL [Concomitant]
     Dosage: 12.5 MG - 25 MG
     Dates: start: 20070828
  8. RISPERDAL [Concomitant]
     Indication: SLEEP DISORDER
     Dates: start: 20070828
  9. RISPERDAL [Concomitant]
     Indication: AFFECTIVE DISORDER
     Dates: start: 20070828
  10. LORAZEPAM [Concomitant]
     Indication: ANXIETY
     Dates: start: 20070828
  11. NEXIUM [Concomitant]
     Dates: start: 20061012
  12. PREDNISONE [Concomitant]
     Dates: start: 20060621

REACTIONS (2)
  - DIABETES MELLITUS [None]
  - KNEE OPERATION [None]
